FAERS Safety Report 10567865 (Version 3)
Quarter: 2015Q1

REPORT INFORMATION
  Report Type: Spontaneous
  Country: US (occurrence: US)
  Receive Date: 20141106
  Receipt Date: 20150130
  Transmission Date: 20150720
  Serious: No
  Sender: FDA-Public Use
  Company Number: US-LEO PHARMA-229965

PATIENT
  Age: 75 Year
  Sex: Female

DRUGS (1)
  1. PICATO [Suspect]
     Active Substance: INGENOL MEBUTATE
     Indication: ACTINIC CHEILITIS
     Route: 061
     Dates: start: 20141003

REACTIONS (5)
  - Application site pain [Recovered/Resolved]
  - Erythema [Recovered/Resolved]
  - Product use issue [Unknown]
  - Dermatitis [Recovered/Resolved]
  - Application site pain [Recovered/Resolved]

NARRATIVE: CASE EVENT DATE: 20141003
